FAERS Safety Report 20680415 (Version 2)
Quarter: 2022Q2

REPORT INFORMATION
  Report Type: Report from Study
  Country: DE (occurrence: DE)
  Receive Date: 20220406
  Receipt Date: 20220418
  Transmission Date: 20220721
  Serious: Yes (Hospitalization)
  Sender: FDA-Public Use
  Company Number: DE-TAKEDA-DE202028209

PATIENT
  Age: 25 Year
  Sex: Male

DRUGS (15)
  1. TEDUGLUTIDE [Suspect]
     Active Substance: TEDUGLUTIDE
     Indication: Short-bowel syndrome
     Dosage: 2.6 MILLIGRAM, QD
     Route: 042
     Dates: start: 20200210, end: 20201004
  2. TEDUGLUTIDE [Suspect]
     Active Substance: TEDUGLUTIDE
     Indication: Short-bowel syndrome
     Dosage: 2.6 MILLIGRAM, QD
     Route: 042
     Dates: start: 20200210, end: 20201004
  3. TEDUGLUTIDE [Suspect]
     Active Substance: TEDUGLUTIDE
     Indication: Short-bowel syndrome
     Dosage: 2.6 MILLIGRAM, QD
     Route: 042
     Dates: start: 20200210, end: 20201004
  4. TEDUGLUTIDE [Suspect]
     Active Substance: TEDUGLUTIDE
     Indication: Short-bowel syndrome
     Dosage: 2.6 MILLIGRAM, QD
     Route: 042
     Dates: start: 20200210, end: 20201004
  5. TEDUGLUTIDE [Suspect]
     Active Substance: TEDUGLUTIDE
     Dosage: 2.6 MILLIGRAM, QD
     Route: 042
     Dates: start: 20201105
  6. TEDUGLUTIDE [Suspect]
     Active Substance: TEDUGLUTIDE
     Dosage: 2.6 MILLIGRAM, QD
     Route: 042
     Dates: start: 20201105
  7. TEDUGLUTIDE [Suspect]
     Active Substance: TEDUGLUTIDE
     Dosage: 2.6 MILLIGRAM, QD
     Route: 042
     Dates: start: 20201105
  8. TEDUGLUTIDE [Suspect]
     Active Substance: TEDUGLUTIDE
     Dosage: 2.6 MILLIGRAM, QD
     Route: 042
     Dates: start: 20201105
  9. PIPERACILLIN SODIUM\TAZOBACTAM SODIUM [Concomitant]
     Active Substance: PIPERACILLIN SODIUM\TAZOBACTAM SODIUM
     Indication: Perforation
     Dosage: UNK
     Route: 065
  10. CHOLECALCIFEROL [Concomitant]
     Active Substance: CHOLECALCIFEROL
     Indication: Vitamin D deficiency
     Dosage: UNK
     Route: 065
  11. CANNABIS SATIVA SUBSP. INDICA TOP [Concomitant]
     Active Substance: CANNABIS SATIVA SUBSP. INDICA TOP
     Indication: Abdominal pain
     Dosage: UNK
     Route: 065
  12. CLINDAMYCIN [Concomitant]
     Active Substance: CLINDAMYCIN
     Indication: Acne
     Dosage: UNK
     Route: 062
     Dates: start: 202203
  13. PANTOPRAZOLE SODIUM [Concomitant]
     Active Substance: PANTOPRAZOLE SODIUM
     Dosage: 40 MILLIGRAM, BID
     Route: 048
     Dates: start: 20200930
  14. METAMIZOL [Concomitant]
     Active Substance: METAMIZOLE SODIUM
     Dosage: 40 GTT DROPS
     Route: 048
     Dates: start: 20200827
  15. PENICILLIN [Concomitant]
     Active Substance: PENICILLIN
     Indication: Tonsillitis
     Dosage: UNK UNK, QD
     Route: 042
     Dates: start: 20200819, end: 20200826

REACTIONS (2)
  - Complication associated with device [Recovered/Resolved]
  - Catheter site infection [Recovered/Resolved]

NARRATIVE: CASE EVENT DATE: 20200812
